FAERS Safety Report 18356788 (Version 3)
Quarter: 2021Q2

REPORT INFORMATION
  Report Type: Spontaneous
  Country: US (occurrence: US)
  Receive Date: 20201007
  Receipt Date: 20210526
  Transmission Date: 20210717
  Serious: Yes (Life-Threatening, Hospitalization, Disabling)
  Sender: FDA-Public Use
  Company Number: US-AMERICAN REGENT INC-2020002067

PATIENT
  Sex: Male
  Weight: 114.28 kg

DRUGS (9)
  1. INJECTAFER [Suspect]
     Active Substance: FERRIC CARBOXYMALTOSE
     Indication: IRON DEFICIENCY ANAEMIA
     Dosage: 750 MILLIGRAM, TIMES ONE
     Route: 042
     Dates: start: 20191120, end: 20191120
  2. ENTERIC ASPIRIN [Concomitant]
     Active Substance: ASPIRIN
     Indication: PRODUCT USED FOR UNKNOWN INDICATION
     Dosage: 81 MILLIGRAM, DAILY
     Route: 048
  3. COUMADIN [Concomitant]
     Active Substance: WARFARIN SODIUM
     Indication: MESENTERIC VEIN THROMBOSIS
     Dosage: 6 MILLIGRAM, DAILY
     Route: 048
  4. HYDROMORPHONE [Concomitant]
     Active Substance: HYDROMORPHONE
     Indication: PRODUCT USED FOR UNKNOWN INDICATION
     Dosage: 2 MG (1?2 TAB) PRN Q4H
     Route: 048
  5. NADOLOL. [Concomitant]
     Active Substance: NADOLOL
     Indication: PRODUCT USED FOR UNKNOWN INDICATION
     Dosage: 20 MILLIGRAM, DAILY
     Route: 048
  6. CLONAZEPAM. [Concomitant]
     Active Substance: CLONAZEPAM
     Indication: PRODUCT USED FOR UNKNOWN INDICATION
     Dosage: 1 MILLIGRAM, PRN QHS
     Route: 048
  7. FIRST?TESTOSTERONE [Concomitant]
     Active Substance: TESTOSTERONE
     Indication: PRODUCT USED FOR UNKNOWN INDICATION
     Dosage: UNK, WEEKLY
     Route: 030
  8. MODAFINIL. [Concomitant]
     Active Substance: MODAFINIL
     Indication: PRODUCT USED FOR UNKNOWN INDICATION
     Dosage: 300 MILLIGRAM, BID
     Route: 048
  9. SERTRALINE [Concomitant]
     Active Substance: SERTRALINE HYDROCHLORIDE
     Indication: PRODUCT USED FOR UNKNOWN INDICATION
     Dosage: 200 MILLIGRAM, DAILY
     Route: 048

REACTIONS (14)
  - Partner stress [Not Recovered/Not Resolved]
  - Feeling abnormal [Not Recovered/Not Resolved]
  - Arthralgia [Not Recovered/Not Resolved]
  - Chest discomfort [Not Recovered/Not Resolved]
  - Product quality issue [Unknown]
  - Hypophosphataemia [Not Recovered/Not Resolved]
  - Chest pain [Not Recovered/Not Resolved]
  - Emotional disorder [Not Recovered/Not Resolved]
  - International normalised ratio abnormal [Not Recovered/Not Resolved]
  - Anhedonia [Not Recovered/Not Resolved]
  - Emotional distress [Not Recovered/Not Resolved]
  - Pain [Not Recovered/Not Resolved]
  - Muscle spasms [Not Recovered/Not Resolved]
  - Anxiety [Not Recovered/Not Resolved]

NARRATIVE: CASE EVENT DATE: 2019
